FAERS Safety Report 8865933 (Version 1)
Quarter: 2012Q4

REPORT INFORMATION
  Report Type: Report from Study
  Country: US (occurrence: US)
  Receive Date: 20121025
  Receipt Date: 20121025
  Transmission Date: 20130627
  Serious: No
  Sender: FDA-Public Use
  Company Number: US-ABBOTT-12P-163-0955534-00

PATIENT
  Age: 36 None
  Sex: Female
  Weight: 54.48 kg

DRUGS (1)
  1. LUPRON DEPOT 3.75 MG [Suspect]
     Indication: ENDOMETRIOSIS
     Dates: start: 201205

REACTIONS (4)
  - Urinary tract infection [Recovering/Resolving]
  - Micturition urgency [Recovered/Resolved]
  - Headache [Not Recovered/Not Resolved]
  - Dysuria [Recovering/Resolving]
